FAERS Safety Report 23551646 (Version 1)
Quarter: 2024Q1

REPORT INFORMATION
  Report Type: Spontaneous
  Country: US (occurrence: US)
  Receive Date: 20240222
  Receipt Date: 20240222
  Transmission Date: 20240409
  Serious: No
  Sender: FDA-Public Use
  Company Number: US-STRIDES ARCOLAB LIMITED-2023SP012104

PATIENT
  Age: 53 Year
  Sex: Male

DRUGS (10)
  1. ETOPOSIDE [Suspect]
     Active Substance: ETOPOSIDE
     Indication: Diffuse large B-cell lymphoma
     Dosage: UNK (R-ICE REGIMEN)
     Route: 065
     Dates: start: 2019, end: 2019
  2. IFOSFAMIDE [Concomitant]
     Active Substance: IFOSFAMIDE
     Indication: Diffuse large B-cell lymphoma
     Dosage: UNK (R-ICE REGIMEN)
     Route: 065
     Dates: start: 2019, end: 2019
  3. RITUXIMAB [Concomitant]
     Active Substance: RITUXIMAB
     Indication: Diffuse large B-cell lymphoma
     Dosage: UNK (R-CHOP REGIMEN)
     Route: 065
     Dates: start: 2018, end: 2019
  4. RITUXIMAB [Concomitant]
     Active Substance: RITUXIMAB
     Dosage: UNK (R-ICE REGIMEN)
     Route: 065
     Dates: start: 2019, end: 2019
  5. CARBOPLATIN [Concomitant]
     Active Substance: CARBOPLATIN
     Indication: Diffuse large B-cell lymphoma
     Dosage: UNK (R-ICE REGIMEN)
     Route: 065
     Dates: start: 2019, end: 2019
  6. CYCLOPHOSPHAMIDE [Concomitant]
     Active Substance: CYCLOPHOSPHAMIDE
     Indication: Diffuse large B-cell lymphoma
     Dosage: UNK (R-CHOP REGIMEN)
     Route: 065
     Dates: start: 2018, end: 2019
  7. CYCLOPHOSPHAMIDE [Concomitant]
     Active Substance: CYCLOPHOSPHAMIDE
     Dosage: UNK
     Route: 065
     Dates: start: 2020, end: 202103
  8. VINCRISTINE [Concomitant]
     Active Substance: VINCRISTINE
     Indication: Diffuse large B-cell lymphoma
     Dosage: UNK (R-CHOP REGIMEN)
     Route: 065
     Dates: start: 2018, end: 2019
  9. DOXORUBICIN [Concomitant]
     Active Substance: DOXORUBICIN
     Indication: Diffuse large B-cell lymphoma
     Dosage: UNK (R-CHOP REGIMEN)
     Route: 065
     Dates: start: 2018, end: 2019
  10. PREDNISONE [Concomitant]
     Active Substance: PREDNISONE
     Indication: Diffuse large B-cell lymphoma
     Dosage: UNK (R-CHOP REGIMEN)
     Route: 065
     Dates: start: 2018, end: 2019

REACTIONS (1)
  - Off label use [Unknown]
